FAERS Safety Report 10287597 (Version 2)
Quarter: 2014Q4

REPORT INFORMATION
  Report Type: Spontaneous
  Country: DE (occurrence: None)
  Receive Date: 20140707
  Receipt Date: 20141006
  Transmission Date: 20150528
  Serious: Yes (Hospitalization, Other)
  Sender: FDA-Public Use
  Company Number: 2014-19897

PATIENT
  Age: 80 Year
  Sex: Female
  Weight: 70 kg

DRUGS (8)
  1. CALCIUM 600+ D (CALCIUM CARBONATE, COLECALCIFEROL) [Concomitant]
  2. GABAPENTIN. [Concomitant]
     Active Substance: GABAPENTIN
  3. SIMVA (SIMVASTATIN) [Concomitant]
  4. PANTOZOL [Concomitant]
     Active Substance: PANTOPRAZOLE SODIUM
  5. EYLEA [Suspect]
     Active Substance: AFLIBERCEPT
     Indication: NEOVASCULAR AGE-RELATED MACULAR DEGENERATION
     Dosage: 2 MG LEFT EYE, INTRAOCULAR
     Route: 031
     Dates: start: 20140521, end: 20140521
  6. DELIX /00885601/ (RAMIPRIL) [Concomitant]
  7. VITALUX (CALCIUM PANTOTHENATE, CYANOCOBALAMIN, VICOTINAMIDE, PYRIDOXINE HYDROCHLORIDE, RIBOFLAVIN, THIAMINE HYDROCHLORIDE) [Concomitant]
  8. CYCLOPENTOLAT (CYCLOPENTOLATE HYDROCHLORIDE) [Concomitant]

REACTIONS (6)
  - Retinal detachment [None]
  - Exudative retinopathy [None]
  - Retinal tear [None]
  - Visual acuity reduced [None]
  - Corneal erosion [None]
  - Corneal irritation [None]

NARRATIVE: CASE EVENT DATE: 20140613
